FAERS Safety Report 10484559 (Version 2)
Quarter: 2015Q1

REPORT INFORMATION
  Report Type: Spontaneous
  Country: IT (occurrence: IT)
  Receive Date: 20140930
  Receipt Date: 20150112
  Transmission Date: 20150720
  Serious: Yes (Hospitalization)
  Sender: FDA-Public Use
  Company Number: IT-PFIZER INC-2014267288

PATIENT
  Age: 57 Year
  Sex: Male

DRUGS (1)
  1. TAZOCIN [Suspect]
     Active Substance: PIPERACILLIN SODIUM\TAZOBACTAM SODIUM
     Dosage: 3 DF, TOTAL
     Route: 041
     Dates: start: 20140509, end: 20140510

REACTIONS (3)
  - Headache [Recovered/Resolved]
  - Feeling hot [Recovered/Resolved]
  - Nausea [Recovered/Resolved]

NARRATIVE: CASE EVENT DATE: 20140510
